FAERS Safety Report 5697135-2 (Version None)
Quarter: 2008Q2

REPORT INFORMATION
  Report Type: 
  Country: None (occurrence: None)
  Receive Date: 20080408
  Receipt Date: 20080328
  Transmission Date: 20081010
  Serious: Yes (Hospitalization)
  Sender: FDA-Public Use
  Company Number: ES-ELI_LILLY_AND_COMPANY-ES200803006689

PATIENT
  Age: 62 Year
  Sex: Female

DRUGS (5)
  1. FORTEO [Suspect]
     Indication: OSTEOPOROSIS
     Dosage: 20 UG, UNKNOWN
     Route: 058
     Dates: start: 20080110, end: 20080314
  2. LYRICA [Concomitant]
     Dosage: UNK, UNKNOWN
     Route: 065
  3. QUIRALAM [Concomitant]
     Dosage: UNK, UNKNOWN
     Route: 065
  4. NATECAL [Concomitant]
     Dosage: UNK, UNKNOWN
     Route: 065
  5. DIAZEPAM [Concomitant]
     Dosage: UNK, UNKNOWN
     Route: 065

REACTIONS (5)
  - APHASIA [None]
  - FATIGUE [None]
  - LOSS OF CONSCIOUSNESS [None]
  - MENINGITIS VIRAL [None]
  - PYREXIA [None]
